FAERS Safety Report 20512206 (Version 1)
Quarter: 2022Q1

REPORT INFORMATION
  Report Type: Spontaneous
  Country: US (occurrence: US)
  Receive Date: 20220224
  Receipt Date: 20220224
  Transmission Date: 20220423
  Serious: No
  Sender: FDA-Public Use
  Company Number: US-NOVARTISTESTPH-NVSC2022US042369

PATIENT
  Sex: Female

DRUGS (1)
  1. VOTRIENT [Suspect]
     Active Substance: PAZOPANIB HYDROCHLORIDE
     Indication: Breast cancer female
     Dosage: 200 MG, QD(4 TABLETS ONCE DAILY)
     Route: 048
     Dates: start: 20220221

REACTIONS (2)
  - Fatigue [Unknown]
  - Malaise [Unknown]
